FAERS Safety Report 18110573 (Version 1)
Quarter: 2020Q3

REPORT INFORMATION
  Report Type: Report from Study
  Country: IT (occurrence: IT)
  Receive Date: 20200804
  Receipt Date: 20200804
  Transmission Date: 20201103
  Serious: Yes (Hospitalization)
  Sender: FDA-Public Use
  Company Number: IT-MYLANLABS-2020M1068821

PATIENT
  Age: 50 Year
  Sex: Male

DRUGS (2)
  1. LARGACTIL                          /00011902/ [Suspect]
     Active Substance: CHLORPROMAZINE HYDROCHLORIDE
     Indication: PRODUCT USED FOR UNKNOWN INDICATION
     Dosage: 1 DOSAGE FORM, QD
     Dates: start: 20200101, end: 20200709
  2. BRUFEN [Suspect]
     Active Substance: IBUPROFEN
     Indication: PAIN
     Dosage: 2 DOSAGE FORM, QD
     Dates: end: 20200709

REACTIONS (5)
  - Normocytic anaemia [Not Recovered/Not Resolved]
  - Discoloured vomit [Not Recovered/Not Resolved]
  - Abdominal pain [Not Recovered/Not Resolved]
  - Asthenia [Not Recovered/Not Resolved]
  - Melaena [Not Recovered/Not Resolved]

NARRATIVE: CASE EVENT DATE: 20200704
